FAERS Safety Report 9492069 (Version 1)
Quarter: 2013Q3

REPORT INFORMATION
  Report Type: Report from Study
  Country: US (occurrence: US)
  Receive Date: 20130830
  Receipt Date: 20130830
  Transmission Date: 20140515
  Serious: Yes (Hospitalization)
  Sender: FDA-Public Use
  Company Number: US-ELI_LILLY_AND_COMPANY-US201308007340

PATIENT
  Age: 67 Year
  Sex: Male

DRUGS (11)
  1. PEMETREXED [Suspect]
     Indication: NON-SMALL CELL LUNG CANCER
     Dosage: 668 MG, 1 IN 3 WEEKS
     Route: 042
     Dates: start: 20130202, end: 20130813
  2. FOLIC ACID [Concomitant]
     Dosage: UNK
     Dates: start: 20130213
  3. B COMPLEX B12 [Concomitant]
     Dosage: UNK
     Dates: start: 20130213
  4. DEXAMETHASONE [Concomitant]
     Dosage: UNK
     Dates: start: 20130219
  5. NAPROXEN SODIUM [Concomitant]
     Dosage: UNK
     Dates: start: 201208
  6. XARELTO [Concomitant]
     Dosage: UNK
     Dates: start: 20120829, end: 20130425
  7. LISINOPRIL [Concomitant]
     Dosage: UNK
     Dates: start: 201208
  8. PRAVASTATIN [Concomitant]
     Dosage: UNK
     Dates: start: 201208
  9. ASPIRIN [Concomitant]
     Dosage: UNK
     Dates: start: 201204
  10. CEPHALEXIN [Concomitant]
     Dosage: UNK
     Dates: start: 20130424, end: 20130515
  11. COENZYM Q10 [Concomitant]
     Dosage: UNK
     Dates: start: 201104

REACTIONS (2)
  - Hyponatraemia [Recovered/Resolved]
  - Pancytopenia [Recovered/Resolved]
